FAERS Safety Report 24848403 (Version 2)
Quarter: 2025Q2

REPORT INFORMATION
  Report Type: Spontaneous
  Country: US (occurrence: US)
  Receive Date: 20250116
  Receipt Date: 20250429
  Transmission Date: 20250717
  Serious: No
  Sender: BRISTOL-MYERS SQUIBB COMPANY
  Company Number: US-BRISTOL-MYERS SQUIBB COMPANY-2025-005852

PATIENT
  Age: 77 Year
  Sex: Female

DRUGS (1)
  1. REVLIMID [Suspect]
     Active Substance: LENALIDOMIDE
     Indication: Plasma cell myeloma refractory
     Dosage: TAKE 1 CAPSULE BY MOUTH EVERY DAY FOR 7 DAYS ON, FOLLOWED BY 7 DAYS OFF, THEN REPEAT FOR A 28 DAY CY
     Route: 048

REACTIONS (3)
  - Inappropriate schedule of product administration [Unknown]
  - Cystitis [Not Recovered/Not Resolved]
  - Oedema peripheral [Not Recovered/Not Resolved]
